FAERS Safety Report 4880438-9 (Version None)
Quarter: 2006Q1

REPORT INFORMATION
  Report Type: 
  Country: None (occurrence: None)
  Receive Date: 20060113
  Receipt Date: 20051202
  Transmission Date: 20060701
  Serious: Yes (Hospitalization)
  Sender: FDA-Public Use
  Company Number: US-AVENTIS-200520151US

PATIENT
  Age: 5 Year
  Sex: Male

DRUGS (4)
  1. LANTUS [Suspect]
     Indication: DIABETES MELLITUS
     Dosage: DOSE UNIT: UNITS
     Route: 051
     Dates: end: 20051206
  2. LANTUS [Suspect]
     Dosage: DOSE: 3 + 3; DOSE UNIT: UNITS
     Route: 051
     Dates: start: 20051206
  3. OPTICLIK (INSULIN INJECTION PEN) [Suspect]
     Indication: DIABETES MELLITUS
     Dosage: DOSE: UNKNOWN
  4. NOVOLOG [Concomitant]
     Dosage: DOSE: UNKNOWN

REACTIONS (7)
  - BLOOD GLUCOSE DECREASED [None]
  - BLOOD GLUCOSE INCREASED [None]
  - INJECTION SITE IRRITATION [None]
  - INJECTION SITE PAIN [None]
  - KETOACIDOSIS [None]
  - PYREXIA [None]
  - VOMITING [None]
